FAERS Safety Report 7732292-5 (Version None)
Quarter: 2011Q3

REPORT INFORMATION
  Report Type: 
  Country: None (occurrence: None)
  Receive Date: 20110906
  Receipt Date: 20110823
  Transmission Date: 20111222
  Serious: No
  Sender: FDA-Public Use
  Company Number: US-AMGEN-USASP2011043133

PATIENT
  Age: 79 Year
  Sex: Female

DRUGS (7)
  1. ZOLOFT [Concomitant]
  2. SIMVASTATIN [Concomitant]
  3. WARFARIN SODIUM [Concomitant]
     Dosage: UNK
  4. PROLIA [Suspect]
     Indication: OSTEOPOROSIS POSTMENOPAUSAL
     Dosage: UNK UNK, Q6MO
     Dates: start: 20110301
  5. CALCIUM CARBONATE [Concomitant]
  6. VITAMIN D [Concomitant]
  7. CARVEDILOL [Concomitant]
     Dosage: UNK

REACTIONS (6)
  - WEIGHT INCREASED [None]
  - ERYTHEMA [None]
  - LIMB INJURY [None]
  - ASTHENIA [None]
  - DRY SKIN [None]
  - IMPAIRED HEALING [None]
